FAERS Safety Report 6584466-7 (Version None)
Quarter: 2010Q1

REPORT INFORMATION
  Report Type: 
  Country: None (occurrence: None)
  Receive Date: 20100212
  Receipt Date: 20100212
  Transmission Date: 20100710
  Serious: Yes (Hospitalization)
  Sender: FDA-Public Use
  Company Number: None

PATIENT
  Age: 77 Year
  Sex: Male
  Weight: 54 kg

DRUGS (1)
  1. LABETALOL HCL [Suspect]
     Indication: HYPERTENSION
     Dosage: 10 MG ONCE IV
     Route: 042
     Dates: start: 20091014, end: 20091014

REACTIONS (5)
  - BRADYCARDIA [None]
  - BRONCHOSPASM [None]
  - ELECTROMECHANICAL DISSOCIATION [None]
  - HYPOTENSION [None]
  - RESPIRATORY DEPRESSION [None]
